FAERS Safety Report 20122277 (Version 6)
Quarter: 2024Q4

REPORT INFORMATION
  Report Type: Spontaneous
  Country: US (occurrence: US)
  Receive Date: 20211128
  Receipt Date: 20241118
  Transmission Date: 20250115
  Serious: Yes (Other)
  Sender: PURDUE
  Company Number: US-PURDUE-USA-2020-0152716

PATIENT
  Sex: Male
  Weight: 99.79 kg

DRUGS (59)
  1. OXYCONTIN [Suspect]
     Active Substance: OXYCODONE HYDROCHLORIDE
     Indication: Intervertebral disc protrusion
     Dosage: UNKNOWN
     Route: 048
     Dates: start: 2017
  2. OXYCONTIN [Suspect]
     Active Substance: OXYCODONE HYDROCHLORIDE
     Dosage: UNKNOWN
     Route: 048
  3. OXYCODONE HYDROCHLORIDE [Suspect]
     Active Substance: OXYCODONE HYDROCHLORIDE
     Indication: Pain
     Dosage: UNKNOWN
     Route: 048
     Dates: start: 2013, end: 2015
  4. OXYCODONE HYDROCHLORIDE [Suspect]
     Active Substance: OXYCODONE HYDROCHLORIDE
     Dosage: UNKNOWN
     Route: 065
  5. OXYCODONE HYDROCHLORIDE [Suspect]
     Active Substance: OXYCODONE HYDROCHLORIDE
     Indication: Pain management
     Dosage: UNKNOWN
     Route: 048
  6. BUTRANS [Suspect]
     Active Substance: BUPRENORPHINE
     Indication: Pain management
     Dosage: UNKNOWN
     Route: 062
  7. HYDROMORPHONE [Suspect]
     Active Substance: HYDROMORPHONE
     Indication: Pain
     Dosage: 2 MILLIGRAM (TAKE 1 TO 2 TABLETS ORALLY 4 TIMES A DAY WHEN NEEDED)
     Route: 048
  8. HYDROMORPHONE [Suspect]
     Active Substance: HYDROMORPHONE
     Indication: Lumbar spinal stenosis
     Dosage: 2 MILLIGRAM, 1 TO 2 TABLETS ORALLY 4 TIMES A DAY WHEN NEEDED
     Route: 048
  9. HYDROMORPHONE [Suspect]
     Active Substance: HYDROMORPHONE
     Dosage: 4 MILLIGRAM, Q4H PRN (1 TABLET)
     Route: 048
  10. MORPHINE SULFATE [Suspect]
     Active Substance: MORPHINE SULFATE
     Indication: Pain management
     Dosage: UNKNOWN
     Route: 048
  11. MORPHINE SULFATE [Suspect]
     Active Substance: MORPHINE SULFATE
     Indication: Pain
     Dosage: 30 MILLIGRAM (TAKE 1 TO 2 TABLETS ORALLY EVERY 12 HOURS WHEN NEEDED)
     Route: 048
  12. MORPHINE SULFATE [Suspect]
     Active Substance: MORPHINE SULFATE
     Indication: Lumbar spinal stenosis
     Dosage: 30 MILLIGRAM (TAKE 1 TABLET ORALLY 2 TIMES A DAY)
     Route: 048
  13. MORPHINE SULFATE [Suspect]
     Active Substance: MORPHINE SULFATE
     Indication: Spinal osteoarthritis
     Dosage: 30 MILLIGRAM (1 TABLET ORALLY 2 TIMES A DAY)
     Route: 048
  14. MORPHINE SULFATE [Suspect]
     Active Substance: MORPHINE SULFATE
     Indication: Breakthrough pain
     Dosage: 15 MILLIGRAM (TAKE 1 TO 2 TABLETS ORALLY 3 TIMES A DAY AS NEEDED FOR BREAKTHROUGH PAIN DO NOT EXCEED
     Route: 048
  15. MORPHINE SULFATE [Suspect]
     Active Substance: MORPHINE SULFATE
     Dosage: 15 MILLIGRAM (TAKE 1 TABLET ORALLY 3 TIMES A DAY WHEN NEEDED FOR BREAKTHROUGH PAIN
     Route: 048
  16. MORPHINE SULFATE [Suspect]
     Active Substance: MORPHINE SULFATE
     Dosage: 30 MILLIGRAM (TAKE 1 TO 2 TABLETS ORALLY EVERY 12 HOURS)
     Route: 048
  17. MORPHINE SULFATE [Suspect]
     Active Substance: MORPHINE SULFATE
     Indication: Pain
     Dosage: 250 MILLIGRAM, 5/DAY
     Route: 048
     Dates: start: 200904, end: 2013
  18. MORPHINE SULFATE [Suspect]
     Active Substance: MORPHINE SULFATE
     Indication: Back pain
  19. MS CONTIN [Suspect]
     Active Substance: MORPHINE SULFATE
     Indication: Pain management
     Dosage: UNKNOWN
     Route: 048
  20. MORPHINE SULFATE [Suspect]
     Active Substance: MORPHINE SULFATE
     Indication: Pain
     Dosage: UNKNOWN
     Route: 048
     Dates: start: 2009, end: 2013
  21. MORPHINE SULFATE [Suspect]
     Active Substance: MORPHINE SULFATE
     Dosage: UNKNOWN
     Route: 048
  22. ACETAMINOPHEN\OXYCODONE HYDROCHLORIDE [Suspect]
     Active Substance: ACETAMINOPHEN\OXYCODONE HYDROCHLORIDE
     Indication: Pain
     Dosage: TAKE 1 TO 2 TABLETS ORALLY EVERY 6 HOURS WHEN NEEDED
     Route: 048
  23. ACETAMINOPHEN\OXYCODONE HYDROCHLORIDE [Suspect]
     Active Substance: ACETAMINOPHEN\OXYCODONE HYDROCHLORIDE
     Dosage: TAKE 1 TO 2 TABLETS ORALLY 3 TIMES A DAY WHEN NEEDED
     Route: 048
  24. HYDROCODONE BITARTRATE AND ACETAMINOPHEN [Suspect]
     Active Substance: ACETAMINOPHEN\HYDROCODONE BITARTRATE
     Indication: Back pain
     Dosage: UNK, QID
     Route: 048
     Dates: start: 200904
  25. HYDROCODONE BITARTRATE AND ACETAMINOPHEN [Suspect]
     Active Substance: ACETAMINOPHEN\HYDROCODONE BITARTRATE
     Indication: Pain
     Dosage: 2 TABLET, Q4H PRN (5-500 MG)
     Route: 048
  26. HYDROCODONE BITARTRATE AND ACETAMINOPHEN [Suspect]
     Active Substance: ACETAMINOPHEN\HYDROCODONE BITARTRATE
     Indication: Lumbar spinal stenosis
     Dosage: TAKE 1 TO 2 TABLETS ORALLY 3 TIMES A DAY WHEN NEEDED  (5-500 MG)
     Route: 048
  27. HYDROCODONE BITARTRATE AND ACETAMINOPHEN [Suspect]
     Active Substance: ACETAMINOPHEN\HYDROCODONE BITARTRATE
     Dosage: 1 TABLET, Q8H PRN (10-325 MG )
     Route: 048
  28. HYDROCODONE BITARTRATE AND ACETAMINOPHEN [Suspect]
     Active Substance: ACETAMINOPHEN\HYDROCODONE BITARTRATE
     Dosage: TAKE 1 TO 2 TABLETS ORALLY EVERY 6 HOURS WHEN NEEDED FOR PAIN DO NOT TAKE MORE THAN 8 TABLETS A DAY
     Route: 048
  29. HYDROCODONE BITARTRATE AND ACETAMINOPHEN [Suspect]
     Active Substance: ACETAMINOPHEN\HYDROCODONE BITARTRATE
     Dosage: TAKE 1/2 TO 1 TABLET ORALLY EVERY 3 TO 4 HOURS WHEN NEEDED FOR PAIN MUST LAST 30 DAYS (10-325 MG)
     Route: 048
  30. HYDROCODONE BITARTRATE AND ACETAMINOPHEN [Suspect]
     Active Substance: ACETAMINOPHEN\HYDROCODONE BITARTRATE
     Dosage: 1 TABLET, TID PRN, TAKE 1 TABLET ORALLY 3 TIMES A DAY WHEN NEEDED FOR PAIN  (5-500 MG)
     Route: 048
  31. HYDROCODONE BITARTRATE AND ACETAMINOPHEN [Suspect]
     Active Substance: ACETAMINOPHEN\HYDROCODONE BITARTRATE
     Dosage: 1 TABLET, TID PRN (TAKE 1 TABLET ORALLY 3 TIMES A DAY WHEN NEEDED FOR PAIN , 5-500 MG)
     Route: 048
  32. HYDROCODONE BITARTRATE AND ACETAMINOPHEN [Suspect]
     Active Substance: ACETAMINOPHEN\HYDROCODONE BITARTRATE
     Dosage: 1 TABLET, Q4H PRN (TAKE 1 TABLET ORALLY EVERY 4 HOURS AS NEEDED FOR PAIN. DO NOT EXCEED 6 TABLETS IN
     Route: 048
  33. HYDROCODONE BITARTRATE AND ACETAMINOPHEN [Suspect]
     Active Substance: ACETAMINOPHEN\HYDROCODONE BITARTRATE
     Dosage: 1 TABLET, Q6H PRN (TAKE 1 TABLET ORALLY EVERY 6 HOURS WHEN NEEDED FOR PAIN LIMIT OF 4 PER DAY, 10-32
     Route: 048
  34. HYDROCODONE BITARTRATE AND ACETAMINOPHEN [Suspect]
     Active Substance: ACETAMINOPHEN\HYDROCODONE BITARTRATE
     Dosage: 2 TABLET, Q4H PRN (5-500 MG)
     Route: 048
  35. HYDROCODONE BITARTRATE AND ACETAMINOPHEN [Suspect]
     Active Substance: ACETAMINOPHEN\HYDROCODONE BITARTRATE
     Dosage: 2 TABLET, Q6H PRN (TAKE 2 TABLETS ORALLY EVERY 6 HOURS AS NEEDED FOR PAIN. DO NOT EXCEED 8 TABLETS I
     Route: 048
  36. HYDROCODONE BITARTRATE AND ACETAMINOPHEN [Suspect]
     Active Substance: ACETAMINOPHEN\HYDROCODONE BITARTRATE
     Dosage: 2 TABLET, Q6H PRN (TAKE 2 TABLETS ORALLY EVERY 6 HOURS WHEN NEEDED FOR PAIN LIMIT OF 8 PER DAY, 5-50
     Route: 048
  37. HYDROCODONE BITARTRATE AND ACETAMINOPHEN [Suspect]
     Active Substance: ACETAMINOPHEN\HYDROCODONE BITARTRATE
     Dosage: 1 TABLET ORALLY EVERY 4 TO 6 HOURS WHEN NEEDED (5-500 MG)
     Route: 048
  38. HYDROCODONE BITARTRATE AND ACETAMINOPHEN [Suspect]
     Active Substance: ACETAMINOPHEN\HYDROCODONE BITARTRATE
     Dosage: TAKE 1 TO 2 TABLETS ORALLY EVERY 4 TO 6 HOURS AS NEEDED AS PAIN. DO NOT EXCEED 6 TABLETS IN 24 HOURS
     Route: 048
  39. HYDROCODONE BITARTRATE AND ACETAMINOPHEN [Suspect]
     Active Substance: ACETAMINOPHEN\HYDROCODONE BITARTRATE
     Dosage: TAKE 1/2 TO 1 TABLET ORALLY EVERY 4 TO 6 HOURS WHEN NEEDED FOR PAIN LIMIT OF 4 PER DAY (10-325 MG)
     Route: 048
  40. HYDROCODONE BITARTRATE AND ACETAMINOPHEN [Suspect]
     Active Substance: ACETAMINOPHEN\HYDROCODONE BITARTRATE
     Dosage: 10-325 MG ORAL TAB- TAKE 1 TO 2 TABLETS ORALLY  EVERY 6 HOURS WHEN NEEDED
     Route: 048
  41. HYDROCODONE BITARTRATE AND ACETAMINOPHEN [Suspect]
     Active Substance: ACETAMINOPHEN\HYDROCODONE BITARTRATE
     Dosage: (10-325 MG ),TAKE 1 TO 2 TABLETS ORALLY 3 TIMES A DAY WHEN NEEDED
     Route: 048
  42. HYDROCODONE BITARTRATE AND ACETAMINOPHEN [Suspect]
     Active Substance: ACETAMINOPHEN\HYDROCODONE BITARTRATE
     Dosage: (10-325 MG ), TAKE 1 TO 2 TABLETS ORALLY EVERY 6 HOURS WHEN NEEDED
     Route: 048
  43. ACETAMINOPHEN\CODEINE PHOSPHATE [Suspect]
     Active Substance: ACETAMINOPHEN\CODEINE PHOSPHATE
     Indication: Lumbar spinal stenosis
     Dosage: 1 TABLET, Q6H PRN (DO NOT EXCEED 4 TABLETS IN 24 HOURS, 300-60 MG)
     Route: 048
  44. ACETAMINOPHEN\CODEINE PHOSPHATE [Suspect]
     Active Substance: ACETAMINOPHEN\CODEINE PHOSPHATE
     Indication: Spinal osteoarthritis
  45. ACETAMINOPHEN\CODEINE PHOSPHATE [Suspect]
     Active Substance: ACETAMINOPHEN\CODEINE PHOSPHATE
     Indication: Pain
  46. TRAMADOL [Suspect]
     Active Substance: TRAMADOL
     Indication: Pain management
     Dosage: UNKNOWN
     Route: 048
  47. DHC PLUS [Suspect]
     Active Substance: ACETAMINOPHEN\CAFFEINE\DIHYDROCODEINE BITARTRATE
     Indication: Pain management
     Dosage: UNKNOWN
     Route: 048
  48. METHADONE [Suspect]
     Active Substance: METHADONE HYDROCHLORIDE
     Indication: Pain
     Dosage: 1 TABLET ORALLY EVERY MORNING FOR 4 DAYS THEN UP TO 1 TABLET ORALLY 2 TIMES A DAY IF NEEDED
     Route: 048
  49. CYMBALTA [Suspect]
     Active Substance: DULOXETINE HYDROCHLORIDE
     Indication: Pain
     Dosage: UNKNOWN
     Route: 065
  50. CYMBALTA [Suspect]
     Active Substance: DULOXETINE HYDROCHLORIDE
     Indication: Back pain
     Dosage: 30 MG(TAKE 1 CAPSULE BY MOUTH DAILY)
     Route: 048
  51. CYMBALTA [Suspect]
     Active Substance: DULOXETINE HYDROCHLORIDE
     Indication: Spinal osteoarthritis
     Dosage: 20 MG(TAKE 1 CAPSULE ORALLY DAILY FOR TWO WEEKS. IN TWO WEEKS INCREASE TO TWO CAPSULES DAILY. TWO WE
     Route: 048
  52. CYMBALTA [Suspect]
     Active Substance: DULOXETINE HYDROCHLORIDE
     Indication: Lumbar spinal stenosis
     Dosage: 30 MG(TAKE 1 CAPSULE ORALLY DAILY FOR TWO WEEKS. IF TOLERATING PLEASE INCREASE TO 2 CAPSULES ORALLY
     Route: 048
  53. CYMBALTA [Suspect]
     Active Substance: DULOXETINE HYDROCHLORIDE
     Indication: Lumbar radiculopathy
     Dosage: 60 MG(TAKE 1 CAPSULE BY MOUTH DAILY)
     Route: 048
  54. CYMBALTA [Suspect]
     Active Substance: DULOXETINE HYDROCHLORIDE
     Dosage: 20 MG(TTAKE 2 CAPSULES BY MOUTH DAILY FOR 14 DAYS, THEN 1 CAPSULE DAILY FOR 14 DAYS. THEN STOP)
     Route: 048
  55. NORCO [Suspect]
     Active Substance: ACETAMINOPHEN\HYDROCODONE BITARTRATE
     Indication: Pain
     Dosage: 10-325MG (TAKE 1 TABLET ORALLY EVERY 6 HOURS WHEN NEEDED)
     Route: 048
  56. NORCO [Suspect]
     Active Substance: ACETAMINOPHEN\HYDROCODONE BITARTRATE
     Indication: Herpes zoster
     Dosage: 5-325 MG (TAKE 1 TABLET BY MOUTH EVERY 6 HOURS AS NEEDED)
     Route: 048
  57. NORCO [Suspect]
     Active Substance: ACETAMINOPHEN\HYDROCODONE BITARTRATE
     Indication: Folliculitis
     Dosage: UNKNOWN
     Route: 065
     Dates: start: 2013, end: 2015
  58. NORCO [Suspect]
     Active Substance: ACETAMINOPHEN\HYDROCODONE BITARTRATE
     Indication: Joint dislocation
  59. VICODIN [Suspect]
     Active Substance: ACETAMINOPHEN\HYDROCODONE BITARTRATE
     Indication: Product used for unknown indication
     Dosage: UNKNOWN
     Route: 065

REACTIONS (6)
  - Overdose [Recovered/Resolved]
  - Drug dependence [Not Recovered/Not Resolved]
  - Learning disability [Unknown]
  - Pain [Not Recovered/Not Resolved]
  - Gait disturbance [Not Recovered/Not Resolved]
  - Drug ineffective [Not Recovered/Not Resolved]

NARRATIVE: CASE EVENT DATE: 20130101
